FAERS Safety Report 10401335 (Version 2)
Quarter: 2014Q4

REPORT INFORMATION
  Report Type: Spontaneous
  Country: FR (occurrence: FR)
  Receive Date: 20140822
  Receipt Date: 20141020
  Transmission Date: 20150528
  Serious: Yes (Hospitalization)
  Sender: FDA-Public Use
  Company Number: FR-ACCORD-025471

PATIENT
  Age: 61 Year
  Sex: Male

DRUGS (4)
  1. FLUOROURACILE ACCORD [Suspect]
     Active Substance: FLUOROURACIL
     Indication: HYPOPHARYNGEAL CANCER STAGE III
     Route: 042
     Dates: start: 20140721, end: 20140723
  2. NEULASTA [Concomitant]
     Active Substance: PEGFILGRASTIM
  3. DOCETAXEL KABI [Suspect]
     Active Substance: DOCETAXEL
     Indication: HYPOPHARYNGEAL CANCER STAGE III
     Route: 042
     Dates: start: 20140723
  4. CISPLATINE ACCORD [Suspect]
     Active Substance: CISPLATIN
     Indication: HYPOPHARYNGEAL CANCER STAGE III
     Route: 042
     Dates: start: 20140721, end: 20140724

REACTIONS (6)
  - Colitis [Recovered/Resolved with Sequelae]
  - Dyspnoea [Unknown]
  - Acute kidney injury [Unknown]
  - Atrial fibrillation [Unknown]
  - Bone marrow failure [Recovered/Resolved]
  - Sepsis [Recovered/Resolved]

NARRATIVE: CASE EVENT DATE: 20140728
